FAERS Safety Report 9802746 (Version 3)
Quarter: 2014Q1

REPORT INFORMATION
  Report Type: Spontaneous
  Country: BR (occurrence: BR)
  Receive Date: 20140108
  Receipt Date: 20140307
  Transmission Date: 20141002
  Serious: Yes (Other)
  Sender: FDA-Public Use
  Company Number: BR-ASTRAZENECA-2014SE00573

PATIENT
  Age: 4 Year
  Sex: Male
  Weight: 21 kg

DRUGS (4)
  1. VANNAIR [Suspect]
     Indication: ASTHMA
     Dosage: 80/4.5 MCG, BID
     Route: 055
     Dates: start: 201208
  2. BUSONID (BUDESONIDE) [Suspect]
     Indication: RHINITIS ALLERGIC
     Route: 045
     Dates: start: 201208
  3. ANTIALLERGIC [Concomitant]
     Indication: ANTIALLERGIC THERAPY
     Dates: start: 201208
  4. SERETIDE [Concomitant]
     Dosage: DAILY

REACTIONS (6)
  - Laryngitis [Recovering/Resolving]
  - Pharyngitis [Recovering/Resolving]
  - Cough [Recovering/Resolving]
  - Asthma [Recovered/Resolved]
  - Drug administration error [Not Recovered/Not Resolved]
  - Off label use [Not Recovered/Not Resolved]
